FAERS Safety Report 22196701 (Version 8)
Quarter: 2024Q4

REPORT INFORMATION
  Report Type: Spontaneous
  Country: JP (occurrence: JP)
  Receive Date: 20230411
  Receipt Date: 20241105
  Transmission Date: 20250114
  Serious: Yes (Death, Hospitalization, Other)
  Sender: ALEXION PHARMACEUTICALS
  Company Number: 2023A082014

PATIENT
  Age: 87 Year
  Weight: 41 kg

DRUGS (16)
  1. ANDEXXA [Suspect]
     Active Substance: ANDEXANET ALFA
     Indication: Cerebral haemorrhage
     Dosage: METHOD A: INTRAVENOUS ADMINISTRATION OF 400 MG @ 30 MG/MIN FOLLOWED BY 480 MG @ 4 MG/MIN FOR 2 HRS
  2. NEXIUM [Suspect]
     Active Substance: ESOMEPRAZOLE MAGNESIUM
     Dosage: PRESCRIBED AT ANOTHER HOSPITAL
  3. BUFFERIN [Concomitant]
     Active Substance: ASPIRIN
     Dosage: PRESCRIBED AT ANOTHER HOSPITAL
  4. PRAVASTATIN SODIUM [Concomitant]
     Active Substance: PRAVASTATIN SODIUM
     Dosage: PRESCRIBED AT ANOTHER HOSPITAL
  5. FUROSEMIDE [Concomitant]
     Active Substance: FUROSEMIDE
     Dosage: PRESCRIBED AT ANOTHER HOSPITAL
  6. BETAHISTINE MESILATE [Concomitant]
     Active Substance: BETAHISTINE MESILATE
     Dosage: PRESCRIBED AT ANOTHER HOSPITAL
  7. ELIQUIS [Concomitant]
     Active Substance: APIXABAN
     Indication: Pulmonary embolism
     Dosage: PRESCRIBED AT ANOTHER HOSPITAL
  8. ASPIRIN [Concomitant]
     Active Substance: ASPIRIN
     Indication: Carotid artery stenosis
     Dosage: DOSE UNKNOWN
  9. ASPIRIN [Concomitant]
     Active Substance: ASPIRIN
     Indication: Carotid artery stenosis
     Dosage: NUMBER OF SEPARATE DOSAGES UNKNOWN
  10. HEPARINOID [Concomitant]
     Dosage: 3000 IU
     Route: 065
  11. ASPIRIN [Concomitant]
     Active Substance: ASPIRIN
     Dosage: PRESCRIBED AT ANOTHER HOSPITAL
  12. ASPIRIN [Concomitant]
     Active Substance: ASPIRIN
     Dosage: PRESCRIBED AT ANOTHER HOSPITAL
  13. IOPAMIDOL [Concomitant]
     Active Substance: IOPAMIDOL
     Dosage: DOSE UNKNOWN
     Route: 065
  14. PROHANCE [Concomitant]
     Active Substance: GADOTERIDOL
     Dosage: DOSE UNKNOWN
  15. SODIUM CHLORIDE [Concomitant]
     Active Substance: SODIUM CHLORIDE
     Dosage: DOSE UNKNOWN
     Route: 065
  16. APIXABAN [Concomitant]
     Active Substance: APIXABAN
     Indication: Pulmonary embolism
     Dosage: NUMBER OF SEPARATE DOSAGES UNKNOWN

REACTIONS (3)
  - Cerebral infarction [Fatal]
  - Carotid artery occlusion [Fatal]
  - Heparin resistance [Unknown]
